FAERS Safety Report 9175560 (Version 1)
Quarter: 2012Q4

REPORT INFORMATION
  Report Type: 
  Country: US (occurrence: US)
  Receive Date: 20120912
  Receipt Date: 20120912
  Transmission Date: 20130627
  Serious: Yes (Other)
  Sender: FDA-Public Use
  Company Number: US-ELI_LILLY_AND_COMPANY-US201209001688

PATIENT
  Age: 76 Year
  Sex: Male

DRUGS (1)
  1. CIALIS [Suspect]
     Indication: ERECTILE DYSFUNCTION
     Dosage: 20 mg, prn
     Dates: end: 20120904

REACTIONS (5)
  - Visual impairment [Recovered/Resolved]
  - Cataract [Unknown]
  - Incorrect dose administered [Unknown]
  - Drug ineffective [Unknown]
  - Intentional drug misuse [Unknown]
